FAERS Safety Report 8982896 (Version 1)
Quarter: 2012Q4

REPORT INFORMATION
  Report Type: 
  Country: DE (occurrence: DE)
  Receive Date: 20121221
  Receipt Date: 20121221
  Transmission Date: 20130627
  Serious: Yes (Life-Threatening)
  Sender: FDA-Public Use
  Company Number: DE-B.I. PHARMACEUTICALS,INC./RIDGEFIELD-2012-DE-03041DE

PATIENT
  Age: 57 Year
  Sex: Male

DRUGS (3)
  1. PRADAXA [Suspect]
     Indication: ATRIAL FIBRILLATION
     Route: 048
     Dates: end: 20121122
  2. DABIGATRAN DTI [Concomitant]
     Route: 042
  3. ANTICOAGULATION [Concomitant]
     Route: 048

REACTIONS (8)
  - Ischaemic stroke [Not Recovered/Not Resolved]
  - Hemiplegia [Not Recovered/Not Resolved]
  - Aphasia [Not Recovered/Not Resolved]
  - Disturbance in attention [Not Recovered/Not Resolved]
  - Delirium [Unknown]
  - Neurodegenerative disorder [Unknown]
  - Agitation [Unknown]
  - Aphasia [Unknown]
